FAERS Safety Report 7546500-7 (Version None)
Quarter: 2011Q2

REPORT INFORMATION
  Report Type: 
  Country: None (occurrence: None)
  Receive Date: 20110607
  Receipt Date: 20110523
  Transmission Date: 20111010
  Serious: Yes (Hospitalization)
  Sender: FDA-Public Use
  Company Number: 2011MA006252

PATIENT
  Age: 86 Year
  Sex: Male

DRUGS (1)
  1. SULFATRIM PEDIATRIC [Suspect]
     Indication: TONSILLITIS

REACTIONS (8)
  - SELF-MEDICATION [None]
  - ORAL MUCOSA EROSION [None]
  - RASH [None]
  - SKIN EXFOLIATION [None]
  - SKIN EROSION [None]
  - GENITAL EROSION [None]
  - RASH ERYTHEMATOUS [None]
  - BLISTER [None]
